FAERS Safety Report 6931994-8 (Version None)
Quarter: 2010Q3

REPORT INFORMATION
  Report Type: 
  Country: None (occurrence: None)
  Receive Date: 20100819
  Receipt Date: 20100817
  Transmission Date: 20110219
  Serious: Yes (Hospitalization)
  Sender: FDA-Public Use
  Company Number: US-BRISTOL-MYERS SQUIBB COMPANY-15243538

PATIENT
  Age: 76 Year
  Sex: Male

DRUGS (7)
  1. SPRYCEL [Suspect]
     Indication: CHRONIC MYELOID LEUKAEMIA
     Dates: start: 20100716
  2. FINASTERIDE [Concomitant]
  3. RANITIDINE [Concomitant]
  4. FLOMAX [Concomitant]
  5. NIACIN [Concomitant]
  6. AMBIEN [Concomitant]
  7. LISINOPRIL [Concomitant]

REACTIONS (1)
  - ACUTE RESPIRATORY FAILURE [None]
